FAERS Safety Report 10467958 (Version 1)
Quarter: 2014Q3

REPORT INFORMATION
  Report Type: Spontaneous
  Country: CN (occurrence: CN)
  Receive Date: 20140922
  Receipt Date: 20140922
  Transmission Date: 20150326
  Serious: Yes (Hospitalization)
  Sender: FDA-Public Use
  Company Number: CN-ASTRAZENECA-2014SE70780

PATIENT
  Age: 59 Year
  Sex: Female

DRUGS (3)
  1. LUMBROKINASE [Concomitant]
     Route: 048
  2. CRESTOR [Suspect]
     Active Substance: ROSUVASTATIN CALCIUM
     Indication: ARTERIAL STENOSIS
     Route: 048
     Dates: start: 201404, end: 2014
  3. PROBUCOL [Concomitant]
     Active Substance: PROBUCOL
     Route: 048

REACTIONS (8)
  - Drug-induced liver injury [Recovered/Resolved]
  - Cholestasis [Unknown]
  - Transaminases increased [Unknown]
  - Off label use [Unknown]
  - Splenomegaly [Unknown]
  - Ascites [Unknown]
  - Drug-induced liver injury [Unknown]
  - Renal cyst [Unknown]

NARRATIVE: CASE EVENT DATE: 201404
